FAERS Safety Report 25800186 (Version 1)
Quarter: 2025Q3

REPORT INFORMATION
  Report Type: Report from Study
  Country: US (occurrence: US)
  Receive Date: 20250915
  Receipt Date: 20250915
  Transmission Date: 20251020
  Serious: Yes (Hospitalization, Other)
  Sender: ABBVIE
  Company Number: US-ABBVIE-6457771

PATIENT
  Age: 53 Year
  Sex: Female

DRUGS (5)
  1. RINVOQ [Suspect]
     Active Substance: UPADACITINIB
     Indication: Crohn^s disease
     Route: 048
     Dates: start: 20250707, end: 202509
  2. ESTROGENS [Concomitant]
     Active Substance: ESTROGENS
     Indication: Hormone replacement therapy
     Dates: start: 20240201
  3. WELLBUTRIN [Concomitant]
     Active Substance: BUPROPION HYDROCHLORIDE
     Indication: Depression
     Dates: start: 20230101
  4. CITALOPRAM [Concomitant]
     Active Substance: CITALOPRAM
     Indication: Anxiety
     Dates: start: 20180120
  5. PROGESTERONE [Concomitant]
     Active Substance: PROGESTERONE
     Indication: Postmenopause
     Dates: start: 20240101

REACTIONS (3)
  - Large intestinal stenosis [Unknown]
  - Pyrexia [Recovering/Resolving]
  - Drug ineffective [Unknown]

NARRATIVE: CASE EVENT DATE: 20250101
